FAERS Safety Report 4794420-3 (Version None)
Quarter: 2005Q4

REPORT INFORMATION
  Report Type: 
  Country: None (occurrence: None)
  Receive Date: 20051011
  Receipt Date: 20040720
  Transmission Date: 20060501
  Serious: Yes (Death, Life-Threatening)
  Sender: FDA-Public Use
  Company Number: FR-ROCHE-374781

PATIENT
  Age: 74 Year
  Sex: Female
  Weight: 45 kg

DRUGS (3)
  1. XELODA [Suspect]
     Route: 048
     Dates: start: 20040703, end: 20040711
  2. SOLU-MEDROL [Concomitant]
     Route: 048
     Dates: start: 20040610
  3. ARIMIDEX [Concomitant]
     Indication: BREAST CANCER
     Route: 048
     Dates: start: 20040527

REACTIONS (5)
  - APLASIA [None]
  - MOUTH ULCERATION [None]
  - PYREXIA [None]
  - SEPTIC SHOCK [None]
  - ULCER HAEMORRHAGE [None]
